FAERS Safety Report 4693485-7 (Version None)
Quarter: 2005Q2

REPORT INFORMATION
  Report Type: 
  Country: None (occurrence: None)
  Receive Date: 20050615
  Receipt Date: 20050602
  Transmission Date: 20051028
  Serious: Yes (Hospitalization, Other)
  Sender: FDA-Public Use
  Company Number: 2005083699

PATIENT
  Age: 3 Year
  Sex: Female
  Weight: 14.5151 kg

DRUGS (2)
  1. GENOTROPIN [Suspect]
     Indication: PRADER-WILLI SYNDROME
     Dosage: 0.4 MG (0.4 MG), SUBCUTANEOUS
     Route: 058
     Dates: start: 20050318, end: 20050523
  2. CLARITIN [Concomitant]

REACTIONS (6)
  - DRUG DOSE OMISSION [None]
  - FEBRILE CONVULSION [None]
  - HEADACHE [None]
  - PHARMACEUTICAL PRODUCT COMPLAINT [None]
  - PHARYNGITIS [None]
  - VOMITING [None]
